FAERS Safety Report 5579881-4 (Version None)
Quarter: 2008Q1

REPORT INFORMATION
  Report Type: 
  Country: None (occurrence: None)
  Receive Date: 20080102
  Receipt Date: 20071228
  Transmission Date: 20080703
  Serious: Yes (Disabling)
  Sender: FDA-Public Use
  Company Number: JP-MERCK-0712USA09200

PATIENT
  Age: 68 Year
  Sex: Male

DRUGS (3)
  1. HYZAAR [Suspect]
     Indication: HYPERTENSION
     Route: 048
     Dates: start: 20071019, end: 20071214
  2. BEZATOL SR [Concomitant]
     Route: 048
     Dates: start: 20051021, end: 20071214
  3. TANATRIL [Concomitant]
     Route: 048
     Dates: start: 20051021

REACTIONS (1)
  - BLOOD CREATINE PHOSPHOKINASE INCREASED [None]
